FAERS Safety Report 8491714 (Version 7)
Quarter: 2012Q4

REPORT INFORMATION
  Report Type: Report from Study
  Country: US (occurrence: US)
  Receive Date: 20120403
  Receipt Date: 20121029
  Transmission Date: 20130627
  Serious: Yes (Other)
  Sender: FDA-Public Use
  Company Number: US-ROCHE-GNE322744

PATIENT
  Age: 31 Year
  Sex: Female
  Weight: 66.74 kg

DRUGS (7)
  1. OMALIZUMAB [Suspect]
     Indication: ASTHMA
     Dosage: most recent xolair dose 18/oct/2011.
     Route: 058
     Dates: start: 20091125, end: 20111018
  2. SINGULAIR [Concomitant]
     Indication: ASTHMA
     Dosage: UNK
     Route: 065
  3. ALVESCO [Concomitant]
     Indication: ASTHMA
     Dosage: UNK
     Route: 065
  4. PROAIR (UNITED STATES) [Concomitant]
     Indication: ASTHMA
     Dosage: UNK
     Route: 065
  5. LOVENOX [Concomitant]
     Indication: THROMBOSIS
     Dosage: UNK
     Route: 065
  6. HYDROCODONE [Concomitant]
     Indication: BACK PAIN
  7. TYLENOL/CODEINE [Concomitant]
     Indication: BACK PAIN

REACTIONS (5)
  - Uterine spasm [Unknown]
  - Upper respiratory tract infection [Recovered/Resolved]
  - Exposure during pregnancy [Unknown]
  - Polyhydramnios [Unknown]
  - Gestational diabetes [Unknown]
